FAERS Safety Report 4627881-0 (Version None)
Quarter: 2005Q2

REPORT INFORMATION
  Report Type: 
  Country: None (occurrence: None)
  Receive Date: 20050404
  Receipt Date: 20050404
  Transmission Date: 20051028
  Serious: Yes (Hospitalization)
  Sender: FDA-Public Use
  Company Number: None

PATIENT
  Age: 77 Year
  Sex: Female
  Weight: 63.5 kg

DRUGS (8)
  1. AVASTIN [Suspect]
     Indication: COLON CANCER
     Dosage: 360MG Q2 WEEKS INTRAVENOUS
     Route: 042
     Dates: start: 20050201, end: 20050315
  2. FLUOROURACIL [Concomitant]
  3. LEUCOVORIN CALCIUM [Concomitant]
  4. CAMPTOSAR [Concomitant]
  5. DIGOXIN [Concomitant]
  6. LOPRESSOR [Concomitant]
  7. COUMADIN [Concomitant]
  8. GLIPIZIDE [Concomitant]

REACTIONS (5)
  - CEREBROVASCULAR ACCIDENT [None]
  - EMBOLISM [None]
  - INTERNATIONAL NORMALISED RATIO DECREASED [None]
  - ISCHAEMIA [None]
  - SPEECH DISORDER [None]
